FAERS Safety Report 10037631 (Version 1)
Quarter: 2014Q1

REPORT INFORMATION
  Report Type: Spontaneous
  Country: US (occurrence: US)
  Receive Date: 20140326
  Receipt Date: 20140326
  Transmission Date: 20141002
  Serious: Yes (Hospitalization)
  Sender: FDA-Public Use
  Company Number: US-PFIZER INC-2014085086

PATIENT
  Age: 47 Year
  Sex: Male
  Weight: 58.96 kg

DRUGS (1)
  1. CELEBREX [Suspect]
     Indication: PAIN
     Dosage: 200 MG, 1X/DAY
     Dates: start: 201308

REACTIONS (2)
  - Pneumonia [Unknown]
  - Dyspnoea [Unknown]
